FAERS Safety Report 7302060-7 (Version None)
Quarter: 2011Q1

REPORT INFORMATION
  Report Type: 
  Country: None (occurrence: None)
  Receive Date: 20110218
  Receipt Date: 20110216
  Transmission Date: 20110831
  Serious: Yes (Death, Other)
  Sender: FDA-Public Use
  Company Number: BR-GENZYME-FLUD-1000732

PATIENT
  Age: 72 Year
  Sex: Male

DRUGS (7)
  1. PHENYTOIN [Concomitant]
     Indication: PROPHYLAXIS
     Dosage: UNK
     Route: 065
  2. THYMOGLOBULIN [Suspect]
     Indication: STEM CELL TRANSPLANT
     Dosage: 5 MG/KG, DIVIDED OVER 4 DAYS (DAY -4 TO -1)
     Route: 042
  3. BUSULFAN [Suspect]
     Indication: STEM CELL TRANSPLANT
     Dosage: 130 MG/M2, OVER 3 HRS QD DAYS -6 TO -3
     Route: 042
  4. FILGRASTIM [Concomitant]
     Indication: NEUTROPENIA
     Dosage: 5 NG/KG FROM DAY +2 UNTIL ANC MET REQUIREMENTS
     Route: 065
  5. FLUDARA [Suspect]
     Indication: STEM CELL TRANSPLANT
     Dosage: 40 MG/M2 OVER 60 MINUTES QD X 4 DAYS
     Route: 042
  6. TACROLIMUS [Concomitant]
     Indication: PROPHYLAXIS AGAINST GRAFT VERSUS HOST DISEASE
     Route: 065
  7. METHOTREXATE [Concomitant]
     Indication: PROPHYLAXIS AGAINST GRAFT VERSUS HOST DISEASE
     Dosage: 5 MG/M2, ON DAYS 1,3,6,11 POST TRANSPLANT
     Route: 065

REACTIONS (2)
  - ACUTE GRAFT VERSUS HOST DISEASE [None]
  - CHRONIC GRAFT VERSUS HOST DISEASE [None]
